FAERS Safety Report 21523961 (Version 1)
Quarter: 2022Q4

REPORT INFORMATION
  Report Type: Spontaneous
  Country: US (occurrence: US)
  Receive Date: 20221029
  Receipt Date: 20221029
  Transmission Date: 20230113
  Serious: Yes (Other)
  Sender: FDA-Public Use
  Company Number: US-drreddys-LIT/USA/22/0156377

PATIENT
  Age: 36 Year
  Sex: Female

DRUGS (2)
  1. DAPTOMYCIN [Suspect]
     Active Substance: DAPTOMYCIN
     Indication: Sepsis
  2. MEROPENEM [Suspect]
     Active Substance: MEROPENEM
     Indication: Sepsis

REACTIONS (3)
  - Perinephric abscess [Recovering/Resolving]
  - Septic pulmonary embolism [Recovering/Resolving]
  - Drug ineffective for unapproved indication [Unknown]
